FAERS Safety Report 21242876 (Version 1)
Quarter: 2022Q3

REPORT INFORMATION
  Report Type: Spontaneous
  Country: US (occurrence: None)
  Receive Date: 20220822
  Receipt Date: 20220822
  Transmission Date: 20221026
  Serious: Yes (Hospitalization)
  Sender: FDA-Public Use
  Company Number: None

PATIENT
  Age: 27 Year
  Sex: Female
  Weight: 72.2 kg

DRUGS (7)
  1. HUMIRA [Suspect]
     Active Substance: ADALIMUMAB
  2. LEVOTHYROXINE [Concomitant]
     Active Substance: LEVOTHYROXINE
  3. lisdexanfetamine [Concomitant]
  4. ONDANSETRON [Concomitant]
     Active Substance: ONDANSETRON
  5. ALBUTEROL [Concomitant]
     Active Substance: ALBUTEROL
  6. TRIACINOLONE ACETONIDE [Concomitant]
  7. CHOLECALCIFEROL [Concomitant]

REACTIONS (5)
  - Syncope [None]
  - Fatigue [None]
  - Abscess limb [None]
  - Rectal abscess [None]
  - Anal abscess [None]

NARRATIVE: CASE EVENT DATE: 20200924
